FAERS Safety Report 25077121 (Version 1)
Quarter: 2025Q1

REPORT INFORMATION
  Report Type: Spontaneous
  Country: DE (occurrence: DE)
  Receive Date: 20250314
  Receipt Date: 20250314
  Transmission Date: 20250409
  Serious: Yes (Hospitalization, Other)
  Sender: TEVA
  Company Number: None

PATIENT
  Age: 50 Year
  Sex: Female
  Weight: 104 kg

DRUGS (2)
  1. PACLITAXEL [Suspect]
     Active Substance: PACLITAXEL
     Indication: Breast cancer
     Route: 065
     Dates: start: 20250210
  2. DEXAMETHASONE [Concomitant]
     Active Substance: DEXAMETHASONE
     Indication: Premedication
     Route: 042

REACTIONS (4)
  - Seizure [Recovered/Resolved]
  - Urinary incontinence [Recovered/Resolved]
  - Hypersensitivity [Recovered/Resolved]
  - Gaze palsy [Recovered/Resolved]

NARRATIVE: CASE EVENT DATE: 20250210
